FAERS Safety Report 8137753-5 (Version None)
Quarter: 2012Q1

REPORT INFORMATION
  Report Type: 
  Country: None (occurrence: None)
  Receive Date: 20120215
  Receipt Date: 20120203
  Transmission Date: 20120608
  Serious: Yes (Hospitalization, Other)
  Sender: FDA-Public Use
  Company Number: US-MYLANLABS-2012S1003141

PATIENT
  Sex: Male
  Weight: 97.07 kg

DRUGS (18)
  1. FENTANYL-100 [Concomitant]
  2. ZOFRAN [Concomitant]
  3. HYDROCODONE [Concomitant]
  4. VITAMIN B1 TAB [Concomitant]
  5. VERSED [Concomitant]
  6. LIDOCAINE [Concomitant]
  7. ANCEF /00288502/ [Concomitant]
  8. MORPHINE [Concomitant]
  9. ACETAMINOPHEN [Concomitant]
  10. BUMETANIDE [Concomitant]
  11. ZOCOR [Concomitant]
  12. DIGOXIN [Suspect]
     Route: 048
     Dates: start: 20060725, end: 20080415
  13. POTASSIUM CHLORIDE [Concomitant]
  14. XANAX [Concomitant]
  15. KLOR-CON [Concomitant]
  16. GLIPIZIDE [Concomitant]
  17. METOCLOPRAMIDE [Concomitant]
  18. NOVOLIN 70/30 [Concomitant]

REACTIONS (23)
  - ELECTROCARDIOGRAM ABNORMAL [None]
  - MONOCYTE COUNT INCREASED [None]
  - BLOOD UREA INCREASED [None]
  - BUNDLE BRANCH BLOCK LEFT [None]
  - CARDIAC PACEMAKER INSERTION [None]
  - RED BLOOD CELL COUNT DECREASED [None]
  - BLOOD TEST ABNORMAL [None]
  - INTERNATIONAL NORMALISED RATIO INCREASED [None]
  - OEDEMA PERIPHERAL [None]
  - PROTHROMBIN LEVEL INCREASED [None]
  - ELECTROCARDIOGRAM QRS COMPLEX PROLONGED [None]
  - ASTHENIA [None]
  - FATIGUE [None]
  - HEART RATE DECREASED [None]
  - LYMPHOCYTE COUNT DECREASED [None]
  - HAEMATOCRIT DECREASED [None]
  - RED CELL DISTRIBUTION WIDTH INCREASED [None]
  - DYSPNOEA EXERTIONAL [None]
  - BRADYCARDIA [None]
  - PULMONARY HYPERTENSION [None]
  - HAEMOGLOBIN DECREASED [None]
  - BLOOD GLUCOSE INCREASED [None]
  - CARDIOMEGALY [None]
